FAERS Safety Report 17244308 (Version 2)
Quarter: 2020Q3

REPORT INFORMATION
  Report Type: Spontaneous
  Country: US (occurrence: US)
  Receive Date: 20200107
  Receipt Date: 20200824
  Transmission Date: 20201102
  Serious: Yes (Other)
  Sender: FDA-Public Use
  Company Number: US-GILEAD-2019-0444842

PATIENT
  Age: 52 Year
  Sex: Female
  Weight: 70.3 kg

DRUGS (26)
  1. CALCIUM [Concomitant]
     Active Substance: CALCIUM
  2. JULUCA [Concomitant]
     Active Substance: DOLUTEGRAVIR SODIUM\RILPIVIRINE HYDROCHLORIDE
  3. CURCUMA [Concomitant]
     Active Substance: HERBALS\TURMERIC
  4. COMBIVIR [Concomitant]
     Active Substance: LAMIVUDINE\ZIDOVUDINE
  5. PREZISTA [Concomitant]
     Active Substance: DARUNAVIR ETHANOLATE
  6. RETROVIR [Concomitant]
     Active Substance: ZIDOVUDINE
  7. FLONASE [MOMETASONE FUROATE] [Concomitant]
     Active Substance: MOMETASONE FUROATE
  8. SELENIUM [Concomitant]
     Active Substance: SELENIUM
  9. EPIVIR [Concomitant]
     Active Substance: LAMIVUDINE
  10. ISENTRESS [Concomitant]
     Active Substance: RALTEGRAVIR POTASSIUM
  11. LEXIVA [Concomitant]
     Active Substance: FOSAMPRENAVIR CALCIUM
  12. ZERIT [Concomitant]
     Active Substance: STAVUDINE
  13. TRUVADA [Suspect]
     Active Substance: EMTRICITABINE\TENOFOVIR DISOPROXIL FUMARATE
     Indication: HIV INFECTION
     Dosage: UNK
     Route: 048
     Dates: start: 20121011, end: 20150409
  14. INVIRASE [Concomitant]
     Active Substance: SAQUINAVIR MESYLATE
  15. CRIXIVAN [Concomitant]
     Active Substance: INDINAVIR SULFATE
  16. KALETRA [Concomitant]
     Active Substance: LOPINAVIR\RITONAVIR
  17. NORVIR [Concomitant]
     Active Substance: RITONAVIR
  18. VITAMIN D [VITAMIN D NOS] [Concomitant]
     Active Substance: VITAMIN D NOS
  19. INTELENCE [Concomitant]
     Active Substance: ETRAVIRINE
  20. ZOVIRAX [Concomitant]
     Active Substance: ACYCLOVIR
  21. VITAMIN B COMPLEX [Concomitant]
     Active Substance: CYANOCOBALAMIN\DEXPANTHENOL\NIACINAMIDE\PYRIDOXINE HYDROCHLORIDE\RIBOFLAVIN 5^-PHOSPHATE SODIUM\THIAMINE HYDROCHLORIDE\VITAMIN B COMPLEX
  22. SUSTIVA [Concomitant]
     Active Substance: EFAVIRENZ
  23. VIDEX EC [Concomitant]
     Active Substance: DIDANOSINE
  24. VITAMIN C [Concomitant]
     Active Substance: ASCORBIC ACID
  25. KERATIN [Concomitant]
     Active Substance: KERATIN
  26. KRILL OIL [Concomitant]
     Active Substance: DIETARY SUPPLEMENT\KRILL OIL

REACTIONS (9)
  - Anhedonia [Not Recovered/Not Resolved]
  - Anxiety [Not Recovered/Not Resolved]
  - Economic problem [Not Recovered/Not Resolved]
  - Emotional distress [Not Recovered/Not Resolved]
  - Depression [Not Recovered/Not Resolved]
  - Chronic kidney disease [Not Recovered/Not Resolved]
  - Pain [Not Recovered/Not Resolved]
  - Osteopenia [Not Recovered/Not Resolved]
  - Osteoporosis [Unknown]

NARRATIVE: CASE EVENT DATE: 2014
